FAERS Safety Report 19279511 (Version 2)
Quarter: 2021Q2

REPORT INFORMATION
  Report Type: Report from Study
  Country: CA (occurrence: CA)
  Receive Date: 20210520
  Receipt Date: 20210608
  Transmission Date: 20210717
  Serious: Yes (Other)
  Sender: FDA-Public Use
  Company Number: CA-TAKEDA-2021TUS030983

PATIENT
  Age: 14 Year
  Sex: Male

DRUGS (4)
  1. VEDOLIZUMAB [Suspect]
     Active Substance: VEDOLIZUMAB
     Indication: COLITIS ULCERATIVE
     Dosage: 300 MILLIGRAM
     Route: 042
     Dates: start: 20210428
  2. INFLIXIMAB [Concomitant]
     Active Substance: INFLIXIMAB
     Dosage: 500 MILLIGRAM, Q4WEEKS
     Route: 042
     Dates: start: 20201010
  3. PREDNISONE. [Concomitant]
     Active Substance: PREDNISONE
     Dosage: 20 MILLIGRAM
  4. PREDNISONE. [Concomitant]
     Active Substance: PREDNISONE
     Dosage: 40 MILLIGRAM, QD
     Dates: start: 20210401

REACTIONS (2)
  - Product use issue [Unknown]
  - Haematochezia [Unknown]

NARRATIVE: CASE EVENT DATE: 20210428
